FAERS Safety Report 5722943-9 (Version None)
Quarter: 2008Q2

REPORT INFORMATION
  Report Type: 
  Country: None (occurrence: None)
  Receive Date: 20080429
  Receipt Date: 20080429
  Transmission Date: 20081010
  Serious: No
  Sender: FDA-Public Use
  Company Number: None

PATIENT
  Age: 40 Year
  Sex: Female
  Weight: 63.5036 kg

DRUGS (1)
  1. TUBERSOL [Suspect]
     Dosage: 0.1 CC 1 TIME ONLY
     Dates: start: 20080411

REACTIONS (2)
  - HYPOAESTHESIA [None]
  - RASH MACULAR [None]
